FAERS Safety Report 24034389 (Version 1)
Quarter: 2024Q3

REPORT INFORMATION
  Report Type: Spontaneous
  Country: PL (occurrence: PL)
  Receive Date: 20240701
  Receipt Date: 20240701
  Transmission Date: 20241016
  Serious: Yes (Other)
  Sender: ACCORD
  Company Number: None

PATIENT
  Age: 71 Year
  Sex: Female
  Weight: 48 kg

DRUGS (1)
  1. BENDAMUSTINE [Suspect]
     Active Substance: BENDAMUSTINE
     Indication: Chronic lymphocytic leukaemia
     Dates: start: 20210609, end: 20210609

REACTIONS (2)
  - Erythema [Recovering/Resolving]
  - Face oedema [Recovering/Resolving]
